FAERS Safety Report 9490816 (Version 2)
Quarter: 2013Q3

REPORT INFORMATION
  Report Type: Spontaneous
  Country: US (occurrence: US)
  Receive Date: 20130830
  Receipt Date: 20130913
  Transmission Date: 20140515
  Serious: Yes (Death)
  Sender: FDA-Public Use
  Company Number: US-JNJFOC-20130814574

PATIENT
  Age: 57 Year
  Sex: Female
  Weight: 77.57 kg

DRUGS (6)
  1. INVOKANA [Suspect]
     Indication: TYPE 2 DIABETES MELLITUS
     Route: 048
     Dates: start: 20130619
  2. GLYBURIDE [Concomitant]
     Indication: TYPE 2 DIABETES MELLITUS
  3. JANUVIA [Concomitant]
     Indication: TYPE 2 DIABETES MELLITUS
  4. METFORMIN [Concomitant]
     Indication: TYPE 2 DIABETES MELLITUS
  5. SIMVASTATIN [Concomitant]
     Indication: HYPERLIPIDAEMIA
     Dosage: DOSE=40 DAILY (UNIT UNSPECIFIED)
  6. LEVOTHYROXINE [Concomitant]
     Indication: HYPOTHYROIDISM
     Dosage: DOSE=.75 DAILY (UNIT UNSPECIFIED)

REACTIONS (1)
  - Myocardial infarction [Fatal]
